FAERS Safety Report 25604128 (Version 1)
Quarter: 2025Q3

REPORT INFORMATION
  Report Type: Report from Study
  Country: US (occurrence: US)
  Receive Date: 20250725
  Receipt Date: 20250725
  Transmission Date: 20251021
  Serious: Yes (Hospitalization)
  Sender: ABBVIE
  Company Number: US-ABBVIE-6384437

PATIENT
  Age: 39 Year
  Sex: Female

DRUGS (1)
  1. RINVOQ [Suspect]
     Active Substance: UPADACITINIB
     Indication: Rheumatoid arthritis
     Route: 048
     Dates: start: 20240104, end: 202506

REACTIONS (3)
  - Bladder cyst [Not Recovered/Not Resolved]
  - Hysterectomy [Recovering/Resolving]
  - Appendicectomy [Recovering/Resolving]

NARRATIVE: CASE EVENT DATE: 20250601
